FAERS Safety Report 5350750-8 (Version None)
Quarter: 2007Q2

REPORT INFORMATION
  Report Type: 
  Country: None (occurrence: None)
  Receive Date: 20070606
  Receipt Date: 20070606
  Transmission Date: 20071010
  Serious: No
  Sender: FDA-Public Use
  Company Number: None

PATIENT
  Age: 64 Year
  Sex: Female
  Weight: 58.9676 kg

DRUGS (1)
  1. LEVAQUIN [Suspect]
     Indication: BARTONELLOSIS
     Dates: start: 20060601, end: 20060620

REACTIONS (3)
  - MYALGIA [None]
  - TENDON DISORDER [None]
  - TENDON PAIN [None]
